FAERS Safety Report 7910413-9 (Version None)
Quarter: 2011Q4

REPORT INFORMATION
  Report Type: 
  Country: None (occurrence: None)
  Receive Date: 20111111
  Receipt Date: 20111027
  Transmission Date: 20120403
  Serious: Yes (Life-Threatening)
  Sender: FDA-Public Use
  Company Number: GB-ARROW GEN-2011-18336

PATIENT
  Sex: Male

DRUGS (12)
  1. HYOSCINE HYDROBROMIDE [Concomitant]
     Indication: PRODUCT USED FOR UNKNOWN INDICATION
     Route: 065
  2. CLOZAPINE [Concomitant]
     Dosage: 775 MG, DAILY
     Route: 048
     Dates: start: 20111006, end: 20111007
  3. ASPIRIN [Concomitant]
     Indication: PRODUCT USED FOR UNKNOWN INDICATION
     Route: 065
  4. DIPYRIDAMOLE [Concomitant]
     Indication: PRODUCT USED FOR UNKNOWN INDICATION
     Route: 065
  5. LOPERAMIDE HCL [Concomitant]
     Indication: PRODUCT USED FOR UNKNOWN INDICATION
     Route: 065
  6. OMEPRAZOLE [Concomitant]
     Indication: PRODUCT USED FOR UNKNOWN INDICATION
     Route: 065
  7. MIRTAZAPINE [Suspect]
     Dosage: 30 MG, DAILY
     Route: 048
     Dates: start: 20111006, end: 20111010
  8. CO-AMOXICLAV                       /00756801/ [Concomitant]
     Indication: INFECTION
     Dosage: 625 MG, TID
     Route: 048
     Dates: start: 20111006
  9. SIMVASTATIN [Concomitant]
     Indication: PRODUCT USED FOR UNKNOWN INDICATION
     Route: 065
  10. MIRTAZAPINE [Suspect]
     Indication: DEPRESSED MOOD
     Dosage: 15 MG, DAILY
     Route: 048
     Dates: start: 20111003, end: 20111006
  11. CLOZAPINE [Concomitant]
     Indication: SCHIZOPHRENIA
     Dosage: 750 MG, DAILY
     Route: 048
     Dates: end: 20111006
  12. BENZODIAZEPINE DERIVATIVES [Concomitant]
     Indication: PRODUCT USED FOR UNKNOWN INDICATION
     Route: 065

REACTIONS (1)
  - NEUROLEPTIC MALIGNANT SYNDROME [None]
